FAERS Safety Report 26055704 (Version 1)
Quarter: 2025Q4

REPORT INFORMATION
  Report Type: Spontaneous
  Country: US (occurrence: None)
  Receive Date: 20251117
  Receipt Date: 20251117
  Transmission Date: 20260118
  Serious: No
  Sender: Alvotech
  Company Number: US-ALVOTECHPMS-2025-ALVOTECHPMS-005542

PATIENT
  Age: 26 Year
  Sex: Female

DRUGS (1)
  1. SIMLANDI [Suspect]
     Active Substance: ADALIMUMAB-RYVK
     Indication: Crohn^s disease
     Dosage: BI-WEEKLY
     Dates: start: 20251010, end: 20251010

REACTIONS (3)
  - Nausea [Unknown]
  - Skin warm [Unknown]
  - Flushing [Unknown]

NARRATIVE: CASE EVENT DATE: 20251010
